FAERS Safety Report 12328731 (Version 1)
Quarter: 2016Q2

REPORT INFORMATION
  Report Type: Spontaneous
  Country: US (occurrence: US)
  Receive Date: 20160503
  Receipt Date: 20160503
  Transmission Date: 20160815
  Serious: No
  Sender: FDA-Public Use
  Company Number: US-BEH-2015050414

PATIENT
  Sex: Female
  Weight: 97 kg

DRUGS (23)
  1. HIZENTRA [Suspect]
     Active Substance: HUMAN IMMUNOGLOBULIN G
     Indication: HYPER IGM SYNDROME
     Dosage: 4 G 20 ML VIAL
     Route: 058
  2. ACETAMINOPHEN. [Concomitant]
     Active Substance: ACETAMINOPHEN
  3. DIPHENHYDRAMINE. [Concomitant]
     Active Substance: DIPHENHYDRAMINE
  4. DIOVAN [Concomitant]
     Active Substance: VALSARTAN
  5. NASONEX [Concomitant]
     Active Substance: MOMETASONE FUROATE
  6. NYSTATIN. [Concomitant]
     Active Substance: NYSTATIN
  7. ZETIA [Concomitant]
     Active Substance: EZETIMIBE
  8. SINGULAIR [Concomitant]
     Active Substance: MONTELUKAST SODIUM
  9. CLINDAMYCIN [Concomitant]
     Active Substance: CLINDAMYCIN\CLINDAMYCIN PHOSPHATE
  10. BACTRIM [Concomitant]
     Active Substance: SULFAMETHOXAZOLE\TRIMETHOPRIM
  11. TAMIFLU [Concomitant]
     Active Substance: OSELTAMIVIR PHOSPHATE
  12. CLONAZEPAM. [Concomitant]
     Active Substance: CLONAZEPAM
  13. NEXIUM [Concomitant]
     Active Substance: ESOMEPRAZOLE MAGNESIUM
  14. ALBUTEROL. [Concomitant]
     Active Substance: ALBUTEROL
  15. LIDOCAINE/PRILOCAINE [Concomitant]
  16. HIZENTRA [Suspect]
     Active Substance: HUMAN IMMUNOGLOBULIN G
     Indication: HYPER IGM SYNDROME
     Dosage: 4 G 20 ML VIAL
     Route: 058
  17. EPIPEN [Concomitant]
     Active Substance: EPINEPHRINE
  18. METFORMIN [Concomitant]
     Active Substance: METFORMIN HYDROCHLORIDE
  19. BYSTOLIC [Concomitant]
     Active Substance: NEBIVOLOL HYDROCHLORIDE
  20. LMX [Concomitant]
     Active Substance: LIDOCAINE
  21. LEVAQUIN [Concomitant]
     Active Substance: LEVOFLOXACIN
  22. ONDANSETRON [Concomitant]
     Active Substance: ONDANSETRON
  23. NEXIUM [Concomitant]
     Active Substance: ESOMEPRAZOLE MAGNESIUM

REACTIONS (2)
  - Red blood cell count increased [Unknown]
  - White blood cell count increased [Unknown]
